FAERS Safety Report 7600192-7 (Version None)
Quarter: 2011Q3

REPORT INFORMATION
  Report Type: 
  Country: None (occurrence: None)
  Receive Date: 20110711
  Receipt Date: 20110705
  Transmission Date: 20111222
  Serious: Yes (Death, Hospitalization, Other)
  Sender: FDA-Public Use
  Company Number: PHHY2010NZ75180

PATIENT
  Sex: Male

DRUGS (7)
  1. CLOZAPINE [Suspect]
     Indication: SCHIZOPHRENIA
     Dosage: 200 MG, AT NIGHT
     Route: 048
     Dates: start: 20061222
  2. ASPIRIN [Concomitant]
  3. ACETAMINOPHEN [Concomitant]
  4. SLOW-K [Concomitant]
  5. CEPHALOZIN [Concomitant]
  6. FUROSEMIDE [Concomitant]
  7. CILAZAPRIL [Concomitant]

REACTIONS (7)
  - DEATH [None]
  - ANTIPSYCHOTIC DRUG LEVEL INCREASED [None]
  - SEPSIS [None]
  - MITRAL VALVE PROLAPSE [None]
  - MITRAL VALVE INCOMPETENCE [None]
  - STAPHYLOCOCCAL INFECTION [None]
  - ENDOCARDITIS [None]
